FAERS Safety Report 13090232 (Version 1)
Quarter: 2017Q1

REPORT INFORMATION
  Report Type: Report from Study
  Country: None (occurrence: CO)
  Receive Date: 20170105
  Receipt Date: 20170105
  Transmission Date: 20170428
  Serious: Yes (Other)
  Sender: FDA-Public Use
  Company Number: CO-ABBVIE-16K-036-1797925-00

PATIENT
  Age: 19 Year
  Sex: Male
  Weight: 47 kg

DRUGS (1)
  1. HUMIRA [Suspect]
     Active Substance: ADALIMUMAB
     Indication: ANKYLOSING SPONDYLITIS
     Route: 058
     Dates: start: 20150605, end: 20161019

REACTIONS (8)
  - Chest pain [Not Recovered/Not Resolved]
  - Depression [Unknown]
  - Ankylosing spondylitis [Unknown]
  - Abasia [Not Recovered/Not Resolved]
  - Suffocation feeling [Not Recovered/Not Resolved]
  - Mobility decreased [Unknown]
  - Suicidal ideation [Unknown]
  - Peripheral swelling [Not Recovered/Not Resolved]

NARRATIVE: CASE EVENT DATE: 2016
